FAERS Safety Report 25280737 (Version 1)
Quarter: 2025Q2

REPORT INFORMATION
  Report Type: Spontaneous
  Country: CA (occurrence: CA)
  Receive Date: 20250508
  Receipt Date: 20250508
  Transmission Date: 20250717
  Serious: Yes (Death, Life-Threatening, Hospitalization, Other)
  Sender: CELLTRION
  Company Number: CA-CELLTRION INC.-2023CA025716

PATIENT

DRUGS (15)
  1. TRUXIMA [Suspect]
     Active Substance: RITUXIMAB-ABBS
     Indication: Rheumatoid arthritis
     Route: 042
     Dates: start: 20231115
  2. TRUXIMA [Suspect]
     Active Substance: RITUXIMAB-ABBS
     Route: 042
     Dates: start: 20231115
  3. TRUXIMA [Suspect]
     Active Substance: RITUXIMAB-ABBS
  4. AMLODIPINE [Concomitant]
     Active Substance: AMLODIPINE BESYLATE
     Indication: Blood pressure measurement
  5. FOLIC ACID [Concomitant]
     Active Substance: FOLIC ACID
  6. FOLIC ACID [Concomitant]
     Active Substance: FOLIC ACID
  7. METHOTREXATE [Concomitant]
     Active Substance: METHOTREXATE
  8. ROSUVASTATIN [Concomitant]
     Active Substance: ROSUVASTATIN
  9. TELMISARTAN [Concomitant]
     Active Substance: TELMISARTAN
     Indication: Blood pressure measurement
  10. SYNTHROID [Concomitant]
     Active Substance: LEVOTHYROXINE SODIUM
     Indication: Thyroid disorder
  11. PANTOPRAZOLE [Concomitant]
     Active Substance: PANTOPRAZOLE
     Indication: Gastrooesophageal reflux disease
  12. ASPIRIN [Concomitant]
     Active Substance: ASPIRIN
  13. METHYLPREDNISOLONE [Concomitant]
     Active Substance: METHYLPREDNISOLONE
     Indication: Premedication
  14. DIPHENHYDRAMINE HYDROCHLORIDE [Concomitant]
     Active Substance: DIPHENHYDRAMINE HYDROCHLORIDE
     Indication: Premedication
  15. ACETAMINOPHEN [Concomitant]
     Active Substance: ACETAMINOPHEN
     Indication: Premedication

REACTIONS (5)
  - Death [Fatal]
  - COVID-19 [Unknown]
  - Unevaluable event [Unknown]
  - Erythema [Unknown]
  - Influenza [Not Recovered/Not Resolved]

NARRATIVE: CASE EVENT DATE: 20231115
